FAERS Safety Report 4365187-8 (Version None)
Quarter: 2004Q2

REPORT INFORMATION
  Report Type: 
  Country: None (occurrence: None)
  Receive Date: 20040524
  Receipt Date: 20040408
  Transmission Date: 20050107
  Serious: Yes (Other)
  Sender: FDA-Public Use
  Company Number: PHEH2004US04063

PATIENT
  Age: 70 Year
  Sex: Female

DRUGS (1)
  1. ZELNORM [Suspect]
     Dosage: 6 MG, BID, ORAL
     Route: 048

REACTIONS (2)
  - FEELING ABNORMAL [None]
  - LIVER FUNCTION TEST ABNORMAL [None]
